FAERS Safety Report 19894911 (Version 1)
Quarter: 2021Q3

REPORT INFORMATION
  Report Type: Spontaneous
  Country: US (occurrence: US)
  Receive Date: 20210929
  Receipt Date: 20210929
  Transmission Date: 20211014
  Serious: No
  Sender: FDA-Public Use
  Company Number: US-LUPIN PHARMACEUTICALS INC.-2021-16981

PATIENT
  Sex: Female

DRUGS (1)
  1. LEVOTHYROXINE SODIUM TABLETS USP, 75 MCG [Suspect]
     Active Substance: LEVOTHYROXINE SODIUM
     Indication: THYROID DISORDER
     Dosage: 75 MCG, QD, 1 HOUR BEFORE BREAKFAST
     Route: 048
     Dates: start: 20210501

REACTIONS (6)
  - Head discomfort [Unknown]
  - Chest pain [Unknown]
  - Abdominal discomfort [Unknown]
  - Dizziness [Unknown]
  - Diarrhoea [Unknown]
  - Product substitution issue [Unknown]

NARRATIVE: CASE EVENT DATE: 20210502
